FAERS Safety Report 20927608 (Version 3)
Quarter: 2023Q2

REPORT INFORMATION
  Report Type: Spontaneous
  Country: US (occurrence: US)
  Receive Date: 20220607
  Receipt Date: 20230426
  Transmission Date: 20230721
  Serious: Yes (Other)
  Sender: FDA-Public Use
  Company Number: US-BIOGEN-2022BI01129818

PATIENT
  Sex: Female

DRUGS (1)
  1. VUMERITY [Suspect]
     Active Substance: DIROXIMEL FUMARATE
     Indication: Multiple sclerosis
     Route: 050
     Dates: start: 20210427

REACTIONS (5)
  - Seizure [Unknown]
  - Multiple sclerosis [Unknown]
  - Anxiety disorder [Unknown]
  - Intentional product misuse [Unknown]
  - Visual acuity reduced [Unknown]
